FAERS Safety Report 19845951 (Version 2)
Quarter: 2021Q4

REPORT INFORMATION
  Report Type: Spontaneous
  Country: JP (occurrence: JP)
  Receive Date: 20210916
  Receipt Date: 20211104
  Transmission Date: 20220303
  Serious: Yes (Life-Threatening)
  Sender: FDA-Public Use
  Company Number: JP-NOVARTISPH-NVSJ2021JP013661

PATIENT
  Sex: Male

DRUGS (1)
  1. ENTRESTO [Suspect]
     Active Substance: SACUBITRIL\VALSARTAN
     Indication: Product used for unknown indication
     Dosage: MORNING AND EVENING,50 MG, BID
     Route: 048
     Dates: start: 20210824

REACTIONS (2)
  - Cardiac dysfunction [Unknown]
  - Oedema peripheral [Unknown]
